FAERS Safety Report 4289632-1 (Version None)
Quarter: 2004Q1

REPORT INFORMATION
  Report Type: 
  Country: None (occurrence: None)
  Receive Date: 20040129
  Receipt Date: 20030219
  Transmission Date: 20041129
  Serious: Yes (Hospitalization)
  Sender: FDA-Public Use
  Company Number: A001-002-005094

PATIENT
  Age: 70 Year
  Sex: Female
  Weight: 63 kg

DRUGS (5)
  1. ARICEPT [Suspect]
     Indication: DEMENTIA ALZHEIMER'S TYPE
     Dosage: 10 MG, 1 IN 1 D, PER ORAL
     Route: 048
     Dates: start: 20010802, end: 20010806
  2. LIPITOR [Concomitant]
  3. AMLODIPINE [Concomitant]
  4. TIMOLOL MALEATE [Concomitant]
  5. ASPIRIN [Concomitant]

REACTIONS (5)
  - ABDOMINAL PAIN [None]
  - ATRIAL FIBRILLATION [None]
  - DIZZINESS [None]
  - NAUSEA [None]
  - VOMITING [None]
